FAERS Safety Report 21386695 (Version 2)
Quarter: 2022Q3

REPORT INFORMATION
  Report Type: Spontaneous
  Country: PL (occurrence: PL)
  Receive Date: 20220928
  Receipt Date: 20220929
  Transmission Date: 20221026
  Serious: Yes (Death, Hospitalization, Other)
  Sender: FDA-Public Use
  Company Number: PL-NOVARTISPH-NVSC2022PL218206

PATIENT
  Age: 69 Year
  Sex: Male

DRUGS (12)
  1. ZOLEDRONIC ACID [Suspect]
     Active Substance: ZOLEDRONIC ACID
     Indication: Lung adenocarcinoma
     Dosage: 4 MG
     Route: 042
  2. PEMETREXED [Suspect]
     Active Substance: PEMETREXED
     Indication: Lung adenocarcinoma
     Dosage: 500 MG/M2, CYCLIC (21-DAYS CYCLES)
     Route: 042
     Dates: start: 20210325
  3. FILGRASTIM [Suspect]
     Active Substance: FILGRASTIM
     Indication: Lung adenocarcinoma
     Dosage: UNK
     Route: 065
  4. FILGRASTIM [Suspect]
     Active Substance: FILGRASTIM
     Indication: Anaemia
  5. FILGRASTIM [Suspect]
     Active Substance: FILGRASTIM
     Indication: Prophylaxis
  6. CISPLATIN [Suspect]
     Active Substance: CISPLATIN
     Indication: Lung adenocarcinoma
     Dosage: 75 MG/M2, UNKNOWN
     Route: 042
     Dates: start: 20210325
  7. PEMBROLIZUMAB [Suspect]
     Active Substance: PEMBROLIZUMAB
     Indication: Lung adenocarcinoma
     Dosage: 200 MG (FIXED DOSE)
     Route: 042
     Dates: start: 20210325
  8. DARBEPOETIN ALFA [Suspect]
     Active Substance: DARBEPOETIN ALFA
     Indication: Lung adenocarcinoma
     Dosage: UNK
     Route: 065
  9. DARBEPOETIN ALFA [Suspect]
     Active Substance: DARBEPOETIN ALFA
     Indication: Neutropenia
  10. DARBEPOETIN ALFA [Suspect]
     Active Substance: DARBEPOETIN ALFA
     Indication: Prophylaxis
  11. FOLIC ACID [Concomitant]
     Active Substance: FOLIC ACID
     Indication: Product used for unknown indication
     Dosage: UNK
     Route: 065
     Dates: start: 20210325
  12. VITAMIN B12 [Concomitant]
     Active Substance: CYANOCOBALAMIN
     Indication: Product used for unknown indication
     Dosage: UNK
     Route: 065
     Dates: start: 20210325

REACTIONS (12)
  - COVID-19 [Fatal]
  - Metastases to lung [Unknown]
  - Fatigue [Unknown]
  - Decreased appetite [Unknown]
  - Lumbar vertebral fracture [Unknown]
  - Nausea [Unknown]
  - Haematotoxicity [Unknown]
  - Anaemia [Unknown]
  - Atrial fibrillation [Unknown]
  - Neutropenia [Unknown]
  - Spinal compression fracture [Unknown]
  - Therapeutic product effect incomplete [Unknown]

NARRATIVE: CASE EVENT DATE: 20211201
